FAERS Safety Report 4354107-8 (Version None)
Quarter: 2004Q2

REPORT INFORMATION
  Report Type: 
  Country: None (occurrence: None)
  Receive Date: 20040506
  Receipt Date: 20040427
  Transmission Date: 20050107
  Serious: Yes (Other)
  Sender: FDA-Public Use
  Company Number: DE-JNJFOC-20040404867

PATIENT
  Age: 11 Year
  Sex: Male

DRUGS (4)
  1. CONCERTA [Suspect]
     Route: 049
     Dates: start: 20040301, end: 20040421
  2. MEDIKINET [Suspect]
  3. MEDIKINET [Suspect]
  4. CATAPRESAN [Concomitant]
     Indication: DRUG USE FOR UNKNOWN INDICATION

REACTIONS (2)
  - DRUG INEFFECTIVE [None]
  - DYSKINESIA [None]
